FAERS Safety Report 4949928-4 (Version None)
Quarter: 2006Q1

REPORT INFORMATION
  Report Type: 
  Country: None (occurrence: None)
  Receive Date: 20060315
  Receipt Date: 20060301
  Transmission Date: 20060701
  Serious: Yes (Other)
  Sender: FDA-Public Use
  Company Number: 2006030032

PATIENT
  Sex: Male

DRUGS (1)
  1. MECLIZINE [Suspect]
     Dosage: 15 TABLETS ONCE, ORAL
     Route: 048

REACTIONS (2)
  - FEELING ABNORMAL [None]
  - OVERDOSE [None]
